FAERS Safety Report 7776614-8 (Version None)
Quarter: 2011Q3

REPORT INFORMATION
  Report Type: 
  Country: None (occurrence: None)
  Receive Date: 20110922
  Receipt Date: 20110922
  Transmission Date: 20111222
  Serious: No
  Sender: FDA-Public Use
  Company Number: None

PATIENT
  Age: 66 Year
  Sex: Male
  Weight: 87.3 kg

DRUGS (1)
  1. MOXIFLOXACIN [Suspect]
     Indication: CARDIAC FAILURE CONGESTIVE
     Dosage: 400 MG EVERY DAY PO
     Route: 048
     Dates: start: 20110217, end: 20110219

REACTIONS (1)
  - AGEUSIA [None]
